FAERS Safety Report 21896462 (Version 3)
Quarter: 2023Q1

REPORT INFORMATION
  Report Type: Spontaneous
  Country: US (occurrence: US)
  Receive Date: 20230123
  Receipt Date: 20230203
  Transmission Date: 20230417
  Serious: No
  Sender: FDA-Public Use
  Company Number: US-BIOGEN-2022BI01136004

PATIENT
  Sex: Female

DRUGS (9)
  1. VUMERITY [Suspect]
     Active Substance: DIROXIMEL FUMARATE
     Indication: Multiple sclerosis
     Route: 050
     Dates: start: 20220620
  2. VUMERITY [Suspect]
     Active Substance: DIROXIMEL FUMARATE
     Route: 050
  3. VUMERITY [Suspect]
     Active Substance: DIROXIMEL FUMARATE
     Dosage: 231MG TWICE A DAY X7 DAYS.
     Route: 050
     Dates: start: 20220613
  4. VUMERITY [Suspect]
     Active Substance: DIROXIMEL FUMARATE
     Route: 050
     Dates: start: 20220610
  5. VUMERITY [Suspect]
     Active Substance: DIROXIMEL FUMARATE
     Dosage: FROM 13-JUN-2022 TO 19-JUN-2022, PRESCRIBED 231MG TWICE A DAY FOR 7 DAYS, THEN FROM 20-JUN-2022, ...
     Route: 050
     Dates: start: 20220613, end: 20220619
  6. VUMERITY [Suspect]
     Active Substance: DIROXIMEL FUMARATE
     Route: 050
     Dates: start: 20220620
  7. VUMERITY [Suspect]
     Active Substance: DIROXIMEL FUMARATE
     Route: 050
     Dates: start: 20220624, end: 20221231
  8. METFORMIN [Suspect]
     Active Substance: METFORMIN HYDROCHLORIDE
     Indication: Glucose tolerance impaired
     Dosage: FOR TWO WEEKS
     Route: 050
     Dates: start: 202208, end: 202208
  9. SOLU-MEDROL [Suspect]
     Active Substance: METHYLPREDNISOLONE SODIUM SUCCINATE
     Indication: Product used for unknown indication
     Route: 050
     Dates: start: 202207

REACTIONS (22)
  - Drug ineffective [Unknown]
  - Peripheral coldness [Not Recovered/Not Resolved]
  - Hyperhidrosis [Not Recovered/Not Resolved]
  - Constipation [Unknown]
  - Weight increased [Unknown]
  - Swelling face [Unknown]
  - Periorbital swelling [Unknown]
  - Formication [Unknown]
  - Abdominal discomfort [Unknown]
  - Epigastric discomfort [Unknown]
  - Hunger [Unknown]
  - White blood cell count decreased [Unknown]
  - Gait disturbance [Unknown]
  - Fluid retention [Recovered/Resolved]
  - Gastric disorder [Recovered/Resolved]
  - Dehydration [Recovered/Resolved]
  - Immunosuppression [Recovered/Resolved]
  - Pain [Recovered/Resolved]
  - Lymphocyte count decreased [Not Recovered/Not Resolved]
  - Diarrhoea [Unknown]
  - Erythema [Unknown]
  - Flushing [Recovered/Resolved]

NARRATIVE: CASE EVENT DATE: 20220101
